FAERS Safety Report 5898865-X (Version None)
Quarter: 2008Q3

REPORT INFORMATION
  Report Type: 
  Country: None (occurrence: None)
  Receive Date: 20080925
  Receipt Date: 20080917
  Transmission Date: 20090109
  Serious: Yes (Death, Hospitalization)
  Sender: FDA-Public Use
  Company Number: PL-ROCHE-587111

PATIENT
  Age: 58 Year

DRUGS (3)
  1. TICLOPIDINE HCL [Suspect]
     Indication: ANTIPLATELET THERAPY
     Route: 065
     Dates: start: 20010201
  2. TICLOPIDINE HCL [Suspect]
     Route: 065
  3. ACENOCOUMAROL [Suspect]
     Indication: ATRIAL FIBRILLATION
     Route: 065

REACTIONS (3)
  - CEREBROVASCULAR ACCIDENT [None]
  - ESSENTIAL THROMBOCYTHAEMIA [None]
  - MYOCARDIAL INFARCTION [None]
